FAERS Safety Report 8239562-5 (Version None)
Quarter: 2012Q1

REPORT INFORMATION
  Report Type: 
  Country: None (occurrence: None)
  Receive Date: 20120326
  Receipt Date: 20120313
  Transmission Date: 20120608
  Serious: Yes (Death, Hospitalization)
  Sender: FDA-Public Use
  Company Number: 2012PL000052

PATIENT
  Age: 25 Year
  Sex: Male

DRUGS (1)
  1. AZATHIOPRINE [Suspect]
     Indication: CROHN'S DISEASE

REACTIONS (20)
  - LYMPHOHISTIOCYTOSIS [None]
  - PANCYTOPENIA [None]
  - ERYTHROPHAGOCYTOSIS [None]
  - TONSILLAR HYPERTROPHY [None]
  - HISTIOCYTOSIS HAEMATOPHAGIC [None]
  - EYELID OEDEMA [None]
  - UPPER GASTROINTESTINAL HAEMORRHAGE [None]
  - WEIGHT DECREASED [None]
  - PHARYNGITIS [None]
  - MUCOUS MEMBRANE DISORDER [None]
  - MULTI-ORGAN FAILURE [None]
  - EPSTEIN-BARR VIRUS INFECTION [None]
  - THROMBOSIS [None]
  - LYMPHOPROLIFERATIVE DISORDER [None]
  - GASTROINTESTINAL ISCHAEMIA [None]
  - RESPIRATORY DISTRESS [None]
  - INFECTIOUS MONONUCLEOSIS [None]
  - ULCER [None]
  - UPPER AIRWAY OBSTRUCTION [None]
  - TONGUE OEDEMA [None]
